FAERS Safety Report 20543358 (Version 2)
Quarter: 2022Q2

REPORT INFORMATION
  Report Type: Spontaneous
  Country: US (occurrence: US)
  Receive Date: 20220302
  Receipt Date: 20220505
  Transmission Date: 20220720
  Serious: No
  Sender: FDA-Public Use
  Company Number: US-SA-SAC20220224000455

PATIENT
  Age: 13 Year
  Sex: Female

DRUGS (1)
  1. LARONIDASE [Suspect]
     Active Substance: LARONIDASE
     Indication: Mucopolysaccharidosis I
     Dosage: 23.2 MG, QW
     Route: 042
     Dates: start: 20200507

REACTIONS (3)
  - Pain [Recovered/Resolved]
  - Medical device removal [Recovering/Resolving]
  - Osteotomy [Recovering/Resolving]

NARRATIVE: CASE EVENT DATE: 20220201
